FAERS Safety Report 4350499-4 (Version None)
Quarter: 2004Q2

REPORT INFORMATION
  Report Type: 
  Country: None (occurrence: None)
  Receive Date: 20040427
  Receipt Date: 20040415
  Transmission Date: 20050107
  Serious: Yes (Disabling, Other)
  Sender: FDA-Public Use
  Company Number: NSADSS2001028430

PATIENT
  Age: 61 Year
  Sex: Female
  Weight: 62.5964 kg

DRUGS (19)
  1. REMICADE [Suspect]
     Indication: CROHN'S DISEASE
     Dosage: SEE IMAGE
     Route: 041
     Dates: start: 19980401, end: 19980401
  2. REMICADE [Suspect]
     Indication: CROHN'S DISEASE
     Dosage: SEE IMAGE
     Route: 041
     Dates: start: 20010601
  3. REMICADE [Suspect]
     Indication: CROHN'S DISEASE
     Dosage: SEE IMAGE
     Route: 041
     Dates: start: 20010627
  4. REMICADE [Suspect]
     Indication: CROHN'S DISEASE
     Dosage: SEE IMAGE
     Route: 041
     Dates: start: 20010813
  5. REMICADE [Suspect]
     Indication: CROHN'S DISEASE
     Dosage: SEE IMAGE
     Route: 041
     Dates: start: 20010914
  6. REMICADE [Suspect]
     Indication: CROHN'S DISEASE
     Dosage: SEE IMAGE
     Route: 041
     Dates: start: 20011018
  7. ENTOCORT (BUDESONIDE) [Concomitant]
  8. PEPTOBISMAL (BISMUT SUBSALICYLATE) [Concomitant]
  9. BIAXIN [Concomitant]
  10. PRILOSEC [Concomitant]
  11. ESTRADERM [Concomitant]
  12. DRIXORAL (DRIXORAL) [Concomitant]
  13. B 12 (CYANCOBALAMIN) INJECTION [Concomitant]
  14. MULTIVITAMIN (MULTIVITAMINS) [Concomitant]
  15. EXCEDRIN (MIGRAINE) [Concomitant]
  16. TYLENOL [Concomitant]
  17. CELEBREX [Concomitant]
  18. VITAMIN E [Concomitant]
  19. CALCIUM PLUS D (CALCIUM) [Concomitant]

REACTIONS (5)
  - DERMATITIS [None]
  - FIBROMYALGIA [None]
  - LUPUS-LIKE SYNDROME [None]
  - SWELLING FACE [None]
  - URTICARIA [None]
